FAERS Safety Report 9023237 (Version 1)
Quarter: 2013Q1

REPORT INFORMATION
  Report Type: Spontaneous
  Country: US (occurrence: US)
  Receive Date: 20130120
  Receipt Date: 20130120
  Transmission Date: 20140127
  Serious: No
  Sender: FDA-Public Use
  Company Number: US-ALLERGAN-1213668US

PATIENT
  Age: 53 Year
  Sex: Female

DRUGS (4)
  1. BOTOX COSMETIC [Suspect]
     Indication: SKIN WRINKLING
     Dosage: 30 UNITS, SINGLE
     Route: 030
     Dates: start: 201209, end: 201209
  2. BOTOX COSMETIC [Suspect]
     Indication: SKIN WRINKLING
     Dosage: 16 UNITS, SINGLE
     Route: 030
  3. BOTOX COSMETIC [Suspect]
     Indication: SKIN WRINKLING
  4. LEXAPRO [Concomitant]
     Indication: DEPRESSION
     Dosage: 5 MG, QD
     Route: 048
     Dates: start: 201202

REACTIONS (3)
  - Skin wrinkling [Recovering/Resolving]
  - Off label use [Unknown]
  - Eyelid ptosis [Recovering/Resolving]
